FAERS Safety Report 4468110-0 (Version None)
Quarter: 2004Q4

REPORT INFORMATION
  Report Type: 
  Country: None (occurrence: None)
  Receive Date: 20041001
  Receipt Date: 20040921
  Transmission Date: 20050328
  Serious: Yes (Death)
  Sender: FDA-Public Use
  Company Number: 2004235337HN

PATIENT
  Age: 26 Year
  Sex: Male

DRUGS (1)
  1. LINEZOLID (LINEZOLID) SOLUTION, STERILE [Suspect]
     Indication: STAPHYLOCOCCAL SEPSIS
     Dosage: UNK
     Route: 065
     Dates: start: 20040101

REACTIONS (3)
  - AORTIC DISSECTION [None]
  - MESENTERIC OCCLUSION [None]
  - RENAL FAILURE [None]
